FAERS Safety Report 5950215-6 (Version None)
Quarter: 2008Q4

REPORT INFORMATION
  Report Type: 
  Country: None (occurrence: None)
  Receive Date: 20081112
  Receipt Date: 20081107
  Transmission Date: 20090506
  Serious: Yes (Hospitalization)
  Sender: FDA-Public Use
  Company Number: B0542354A

PATIENT
  Age: 75 Year
  Sex: Female
  Weight: 44 kg

DRUGS (1)
  1. VALTREX [Suspect]
     Indication: HERPES ZOSTER
     Dosage: 250MG PER DAY
     Route: 048
     Dates: start: 20080927, end: 20080928

REACTIONS (2)
  - MUSCULAR WEAKNESS [None]
  - RESTLESSNESS [None]
